FAERS Safety Report 7778138-0 (Version None)
Quarter: 2011Q3

REPORT INFORMATION
  Report Type: 
  Country: None (occurrence: None)
  Receive Date: 20110926
  Receipt Date: 20100913
  Transmission Date: 20111222
  Serious: No
  Sender: FDA-Public Use
  Company Number: US-MUTUAL PHARMACEUTICAL COMPANY, INC.-2010P1001421

PATIENT
  Age: 60 Year
  Sex: Female
  Weight: 61.69 kg

DRUGS (10)
  1. LIPITOR [Suspect]
     Indication: BLOOD CHOLESTEROL INCREASED
     Route: 048
     Dates: start: 20091001, end: 20100601
  2. AMOXICILLIN [Suspect]
     Indication: SINUSITIS
     Dates: end: 20100101
  3. MOTRIN [Suspect]
     Route: 048
     Dates: end: 20100601
  4. CALCIUM CARBONATE [Concomitant]
  5. BACTRIM [Suspect]
     Indication: SINUSITIS
     Route: 048
     Dates: start: 20100101, end: 20100401
  6. ASPIRIN ^BAYER^ 81 MG [Concomitant]
     Route: 048
  7. ADVIL COLD AND SINUS [Suspect]
     Indication: SINUSITIS
     Dates: start: 20100501, end: 20100701
  8. MULTI-VITAMINS [Concomitant]
  9. FISH OIL [Concomitant]
  10. VIVELLE [Concomitant]
     Indication: SINUSITIS
     Route: 062

REACTIONS (4)
  - DRUG HYPERSENSITIVITY [None]
  - SINUSITIS [None]
  - RASH [None]
  - BLOOD CHOLESTEROL INCREASED [None]
